FAERS Safety Report 12538070 (Version 1)
Quarter: 2016Q3

REPORT INFORMATION
  Report Type: Spontaneous
  Country: US (occurrence: US)
  Receive Date: 20160707
  Receipt Date: 20160707
  Transmission Date: 20161109
  Serious: Yes (Other)
  Sender: FDA-Public Use
  Company Number: US-009507513-1606USA013413

PATIENT
  Sex: Female

DRUGS (3)
  1. PRISTIQ EXTENDED-RELEASE [Suspect]
     Active Substance: DESVENLAFAXINE SUCCINATE
     Dosage: UNK
     Route: 048
  2. REMERON [Suspect]
     Active Substance: MIRTAZAPINE
     Dosage: 7.5 MG, UNK
     Route: 048
  3. PRISTIQ EXTENDED-RELEASE [Suspect]
     Active Substance: DESVENLAFAXINE SUCCINATE
     Dosage: UNK
     Route: 048
     Dates: end: 20150920

REACTIONS (9)
  - Night sweats [Unknown]
  - Weight decreased [Unknown]
  - Somnolence [Unknown]
  - Adverse event [Unknown]
  - Anxiety [Unknown]
  - Drug intolerance [Unknown]
  - Feeling abnormal [Unknown]
  - Feeding disorder [Unknown]
  - Nausea [Unknown]
